FAERS Safety Report 8607832-4 (Version None)
Quarter: 2012Q3

REPORT INFORMATION
  Report Type: 
  Country: None (occurrence: None)
  Receive Date: 20120821
  Receipt Date: 20120815
  Transmission Date: 20120928
  Serious: Yes (Hospitalization, Other)
  Sender: FDA-Public Use
  Company Number: PHHY2011US51403

PATIENT
  Sex: Female

DRUGS (4)
  1. DIGOXIN [Suspect]
  2. GLEEVEC [Suspect]
     Dosage: 400 MG, DAILY
     Route: 048
  3. GLEEVEC [Suspect]
     Indication: CHRONIC MYELOID LEUKAEMIA
     Dosage: 400 MG, DAILY
     Route: 048
     Dates: start: 20110517
  4. GLEEVEC [Suspect]
     Dosage: 400 MG, DAILY
     Route: 048

REACTIONS (12)
  - ANAEMIA [None]
  - NAUSEA [None]
  - BLOOD IRON DECREASED [None]
  - ASTHENOPIA [None]
  - OCULAR HYPERAEMIA [None]
  - VISION BLURRED [None]
  - VOMITING [None]
  - LABORATORY TEST ABNORMAL [None]
  - LACRIMATION INCREASED [None]
  - EYE SWELLING [None]
  - DIARRHOEA [None]
  - PYREXIA [None]
